FAERS Safety Report 15674239 (Version 13)
Quarter: 2022Q3

REPORT INFORMATION
  Report Type: Other
  Country: CA (occurrence: CA)
  Receive Date: 20181130
  Receipt Date: 20220927
  Transmission Date: 20221027
  Serious: Yes (Hospitalization, Other)
  Sender: FDA-Public Use
  Company Number: CA-NOVPHSZ-PHHY2018CA074508

PATIENT
  Age: 70 Year
  Sex: Female

DRUGS (28)
  1. XOLAIR [Suspect]
     Active Substance: OMALIZUMAB
     Indication: Asthma
     Route: 058
     Dates: start: 20180628
  2. XOLAIR [Suspect]
     Active Substance: OMALIZUMAB
     Route: 058
  3. XOLAIR [Suspect]
     Active Substance: OMALIZUMAB
     Route: 058
     Dates: start: 20180925
  4. XOLAIR [Suspect]
     Active Substance: OMALIZUMAB
     Route: 058
  5. XOLAIR [Suspect]
     Active Substance: OMALIZUMAB
     Route: 058
     Dates: start: 20190507
  6. XOLAIR [Suspect]
     Active Substance: OMALIZUMAB
     Route: 058
     Dates: start: 20191224
  7. XOLAIR [Suspect]
     Active Substance: OMALIZUMAB
     Route: 058
     Dates: start: 20180409
  8. XOLAIR [Suspect]
     Active Substance: OMALIZUMAB
     Route: 058
     Dates: start: 20200416
  9. XOLAIR [Suspect]
     Active Substance: OMALIZUMAB
     Route: 058
     Dates: start: 20180828
  10. PREDNISONE [Concomitant]
     Active Substance: PREDNISONE
     Indication: Asthma
     Route: 048
     Dates: start: 201802, end: 20180419
  11. AMLODIPINE [Concomitant]
     Active Substance: AMLODIPINE BESYLATE
     Indication: Hypertension
     Route: 048
     Dates: start: 2008
  12. RABEPRAZOLE [Concomitant]
     Active Substance: RABEPRAZOLE
     Indication: Gastrooesophageal reflux disease
     Route: 048
     Dates: start: 201710
  13. SINGULAIR [Concomitant]
     Active Substance: MONTELUKAST SODIUM
     Indication: Asthma
     Dosage: 1 DF, QD
     Route: 048
     Dates: start: 2003
  14. SYMBICORT [Concomitant]
     Active Substance: BUDESONIDE\FORMOTEROL FUMARATE DIHYDRATE
     Indication: Asthma
     Dosage: 2 DF(200 UG, BUDESONIDE, 6 UG, FORMOTEROL FUMARATE), BID
     Route: 055
     Dates: start: 2015
  15. SYMBICORT [Concomitant]
     Active Substance: BUDESONIDE\FORMOTEROL FUMARATE DIHYDRATE
     Dosage: 3 UNK, UNK
     Route: 055
  16. VENTOLIN [Concomitant]
     Active Substance: ALBUTEROL SULFATE
     Indication: Asthma
     Dosage: PRN
     Route: 055
     Dates: start: 1988
  17. SPIRIVA [Concomitant]
     Active Substance: TIOTROPIUM BROMIDE MONOHYDRATE
     Indication: Asthma
     Dosage: 2 DF, QD
     Route: 055
     Dates: start: 201710
  18. OMNARIS [Concomitant]
     Active Substance: CICLESONIDE
     Indication: Hypersensitivity
     Dosage: 4 DF, QD
     Route: 045
     Dates: start: 201710
  19. OMNARIS [Concomitant]
     Active Substance: CICLESONIDE
     Indication: Sinus disorder
  20. ATORVASTATIN [Concomitant]
     Active Substance: ATORVASTATIN
     Indication: Dyslipidaemia
     Dosage: 1 DF, QD
     Route: 048
     Dates: start: 2010
  21. LINAGLIPTIN [Concomitant]
     Active Substance: LINAGLIPTIN
     Indication: Type 2 diabetes mellitus
     Dosage: 1 DF, QD
     Route: 048
     Dates: start: 201711
  22. VALSARTAN [Concomitant]
     Active Substance: VALSARTAN
     Indication: Hypertension
     Dosage: 2 DF, QD
     Route: 048
     Dates: start: 2018
  23. CETIRIZINE HYDROCHLORIDE [Concomitant]
     Active Substance: CETIRIZINE HYDROCHLORIDE
     Indication: Product used for unknown indication
     Route: 065
  24. NORVASC [Concomitant]
     Active Substance: AMLODIPINE BESYLATE
     Indication: Product used for unknown indication
     Route: 065
  25. GLUMETZA [Concomitant]
     Active Substance: METFORMIN HYDROCHLORIDE
     Indication: Product used for unknown indication
     Route: 065
  26. GLICLAZIDE [Concomitant]
     Active Substance: GLICLAZIDE
     Indication: Product used for unknown indication
     Route: 065
  27. LIPITOR [Concomitant]
     Active Substance: ATORVASTATIN CALCIUM
     Indication: Product used for unknown indication
     Route: 065
  28. INSULIN NOS [Concomitant]
     Active Substance: INSULIN NOS
     Indication: Product used for unknown indication
     Route: 065

REACTIONS (21)
  - Obstructive airways disorder [Unknown]
  - Forced expiratory volume decreased [Not Recovered/Not Resolved]
  - Haemorrhage [Unknown]
  - Haemoglobin decreased [Recovering/Resolving]
  - Pallor [Unknown]
  - Cerebrovascular accident [Unknown]
  - Drug hypersensitivity [Unknown]
  - Chest discomfort [Unknown]
  - Cough [Not Recovered/Not Resolved]
  - Illness [Recovering/Resolving]
  - Injection site pain [Recovered/Resolved]
  - Nasopharyngitis [Recovering/Resolving]
  - Nasal congestion [Recovering/Resolving]
  - Oropharyngeal pain [Recovering/Resolving]
  - Respiratory tract congestion [Unknown]
  - Sinus congestion [Unknown]
  - Wheezing [Recovered/Resolved]
  - Asthma [Not Recovered/Not Resolved]
  - Dyspnoea [Unknown]
  - Chronic obstructive pulmonary disease [Unknown]
  - Product dose omission issue [Unknown]

NARRATIVE: CASE EVENT DATE: 20180628
